FAERS Safety Report 6125724-X (Version None)
Quarter: 2009Q1

REPORT INFORMATION
  Report Type: 
  Country: None (occurrence: None)
  Receive Date: 20090320
  Receipt Date: 20090130
  Transmission Date: 20090719
  Serious: Yes (Death)
  Sender: FDA-Public Use
  Company Number: US-TYCO HEALTHCARE/MALLINCKRODT-T200900478

PATIENT
  Age: 31 Year
  Sex: Female

DRUGS (11)
  1. ACETAMINOPHEN AND HYDROCODONE BITARTRATE [Suspect]
     Route: 048
  2. VENLAFAXINE HCL [Suspect]
     Route: 048
  3. VALPROIC ACID [Suspect]
     Route: 048
  4. PROMETHAZINE HCL AND CODEINE [Suspect]
     Route: 048
  5. DULOXETINE HYDROCHLORIDE [Suspect]
     Route: 048
  6. TRAZODONE HCL [Suspect]
     Route: 048
  7. PSEUDOEPHEDRINE HCL [Suspect]
     Route: 048
  8. DIPHENHYDRAMINE HCL [Suspect]
     Route: 048
  9. ACETAMINOPHEN [Suspect]
     Route: 048
  10. ACETAMINOPHEN W/DIPHENHYDRAMINE HYDROCHLORIDE [Suspect]
     Route: 048
  11. ETHANOL [Suspect]
     Route: 048

REACTIONS (1)
  - DEATH [None]
